FAERS Safety Report 17190920 (Version 1)
Quarter: 2019Q4

REPORT INFORMATION
  Report Type: Spontaneous
  Country: US (occurrence: US)
  Receive Date: 20191223
  Receipt Date: 20191223
  Transmission Date: 20200122
  Serious: Yes (Other)
  Sender: FDA-Public Use
  Company Number: US-PFIZER INC-2019032907

PATIENT
  Age: 10 Year
  Sex: Male
  Weight: 31.75 kg

DRUGS (2)
  1. OXYBUTIN [Concomitant]
     Active Substance: OXYBUTYNIN
     Indication: NEUROGENIC BLADDER
     Dosage: 10 MG, 1X/DAY
  2. GENOTROPIN [Suspect]
     Active Substance: SOMATROPIN
     Indication: BODY HEIGHT BELOW NORMAL
     Dosage: 1.4 MG, 1X/DAY [ONE TIME AT NIGHT]
     Route: 030
     Dates: start: 2018

REACTIONS (4)
  - Incorrect route of product administration [Unknown]
  - Unresponsive to stimuli [Unknown]
  - Blood glucose decreased [Unknown]
  - Loss of consciousness [Unknown]

NARRATIVE: CASE EVENT DATE: 2018
